FAERS Safety Report 23712866 (Version 1)
Quarter: 2024Q2

REPORT INFORMATION
  Report Type: Spontaneous
  Country: IN (occurrence: IN)
  Receive Date: 20240405
  Receipt Date: 20240405
  Transmission Date: 20240716
  Serious: Yes (Other)
  Sender: FDA-Public Use
  Company Number: IN-PFIZER INC-PV202300178313

PATIENT
  Age: 65 Year
  Sex: Female

DRUGS (1)
  1. LORLATINIB [Suspect]
     Active Substance: LORLATINIB
     Indication: Lung neoplasm malignant
     Dosage: 100 MG, 1X/DAY
     Route: 048
     Dates: start: 20220524

REACTIONS (6)
  - Cerebral ischaemia [Unknown]
  - Pain in extremity [Unknown]
  - Asthenia [Unknown]
  - Monoparesis [Unknown]
  - Nerve injury [Unknown]
  - Bone lesion [Unknown]
